FAERS Safety Report 10037157 (Version 1)
Quarter: 2014Q1

REPORT INFORMATION
  Report Type: Report from Study
  Country: ES (occurrence: ES)
  Receive Date: 20140326
  Receipt Date: 20140326
  Transmission Date: 20141002
  Serious: Yes (Hospitalization)
  Sender: FDA-Public Use
  Company Number: ES-ROCHE-1367441

PATIENT
  Age: 79 Year
  Sex: Male
  Weight: 66 kg

DRUGS (5)
  1. BEVACIZUMAB [Suspect]
     Indication: BREAST CANCER
     Route: 042
     Dates: start: 20140102
  2. 5-FLUOROURACIL [Suspect]
     Indication: BREAST CANCER
     Dosage: CONTINUOUS INFUSION
     Route: 042
  3. 5-FLUOROURACIL [Suspect]
     Route: 040
  4. LEUCOVORIN [Suspect]
     Indication: BREAST CANCER
     Route: 042
  5. OXALIPLATIN [Suspect]
     Indication: BREAST CANCER
     Route: 042

REACTIONS (2)
  - Disorientation [Not Recovered/Not Resolved]
  - Abdominal pain [Not Recovered/Not Resolved]
